FAERS Safety Report 4352839-9 (Version None)
Quarter: 2004Q2

REPORT INFORMATION
  Report Type: 
  Country: None (occurrence: None)
  Receive Date: 20040429
  Receipt Date: 20040421
  Transmission Date: 20050107
  Serious: Yes (Death)
  Sender: FDA-Public Use
  Company Number: NUBN20040006

PATIENT
  Sex: Male
  Weight: 3.3566 kg

DRUGS (2)
  1. NUBAIN [Suspect]
     Indication: LABOUR PAIN
     Dosage: 5 MG ONCE INJ
     Dates: start: 20040305, end: 20040305
  2. MULTIVITAMIN [Concomitant]

REACTIONS (3)
  - COMPLICATIONS OF MATERNAL EXPOSURE TO THERAPEUTIC DRUGS [None]
  - MATERNAL DRUGS AFFECTING FOETUS [None]
  - STILLBIRTH [None]
